FAERS Safety Report 14726461 (Version 5)
Quarter: 2019Q4

REPORT INFORMATION
  Report Type: Spontaneous
  Country: US (occurrence: US)
  Receive Date: 20180406
  Receipt Date: 20191111
  Transmission Date: 20200122
  Serious: No
  Sender: FDA-Public Use
  Company Number: US-PFIZER INC-2017121017

PATIENT
  Age: 61 Year
  Sex: Female
  Weight: 56 kg

DRUGS (17)
  1. LYRICA [Suspect]
     Active Substance: PREGABALIN
     Dosage: 150 MG, 2X/DAY(TAKE IN ADDITION TO 50 MG CAP; TOTAL DOSE 150 MG TWICE DAILY)
     Route: 048
     Dates: start: 201812, end: 2018
  2. LYRICA [Suspect]
     Active Substance: PREGABALIN
     Indication: ARACHNOIDITIS
     Dosage: 100 MG, 2X/DAY
  3. THEOPHYLLINE [Concomitant]
     Active Substance: THEOPHYLLINE ANHYDROUS
     Indication: ASTHMA
     Dosage: 600 MG, 1X/DAY
     Route: 048
  4. CELEBREX [Concomitant]
     Active Substance: CELECOXIB
     Indication: ARACHNOIDITIS
     Dosage: 200 MG, 1X/DAY
     Route: 048
  5. LYRICA [Suspect]
     Active Substance: PREGABALIN
     Dosage: 150 MG, 2X/DAY(TAKE IN ADDITION TO 100 MG CAP; TOTAL DOSE 150 MG TWICE DAILY.)
     Route: 048
     Dates: start: 20180925, end: 2018
  6. CYMBALTA [Concomitant]
     Active Substance: DULOXETINE HYDROCHLORIDE
     Dosage: 60 MG, 1X/DAY
     Route: 048
  7. LAMOTRIGINE. [Concomitant]
     Active Substance: LAMOTRIGINE
     Indication: ARACHNOIDITIS
     Dosage: 200 MG, 2X/DAY
     Route: 048
  8. ESTROGEN [Concomitant]
     Active Substance: ESTROGENS
     Indication: HYSTERECTOMY
     Dosage: 1 MG, 1X/DAY
     Route: 048
  9. ADVAIR HFA [Concomitant]
     Active Substance: FLUTICASONE PROPIONATE\SALMETEROL XINAFOATE
     Indication: ASTHMA
     Dosage: UNK, 1X/DAY (500MG/50MG SPRAY BY MOUTH)
     Route: 048
  10. LYRICA [Suspect]
     Active Substance: PREGABALIN
     Dosage: 150 MG, 2X/DAY(TAKE IN ADDITION TO 100 MG CAP; TOTAL DOSE 150 MG TWICE DAILY)
     Route: 048
     Dates: start: 20181217, end: 2018
  11. DILAUDID [Concomitant]
     Active Substance: HYDROMORPHONE HYDROCHLORIDE
     Indication: ARACHNOIDITIS
     Dosage: UNK UNK, DAILY (4 MG NUMBER 14 PER DAY, THAT^S AN AVERAGE, THE 14 PER DAY)
     Route: 048
  12. LYRICA [Suspect]
     Active Substance: PREGABALIN
     Dosage: 150 MG, 2X/DAY(TAKE IN ADDITION TO 50 MG CAP; TOTAL DOSE 150 MG TWICE DAILY)
     Route: 048
     Dates: start: 20180702, end: 2018
  13. FENTANYL. [Concomitant]
     Active Substance: FENTANYL
     Indication: ARACHNOIDITIS
     Dosage: 175 UG, ALTERNATE DAY
     Route: 062
  14. FENTANYL. [Concomitant]
     Active Substance: FENTANYL
     Indication: BACK PAIN
  15. FAMCICLOVIR. [Concomitant]
     Active Substance: FAMCICLOVIR
     Indication: ARACHNOIDITIS
     Dosage: 500 MG, 1X/DAY
     Route: 048
  16. LYRICA [Suspect]
     Active Substance: PREGABALIN
     Indication: NEURALGIA
     Dosage: 100 MG, 3X/DAY
     Route: 048
  17. LYRICA [Suspect]
     Active Substance: PREGABALIN
     Indication: SPINAL CORD INJURY
     Dosage: 50 MG, 2X/DAY

REACTIONS (1)
  - Tongue disorder [Recovering/Resolving]
